FAERS Safety Report 6194912-9 (Version None)
Quarter: 2009Q2

REPORT INFORMATION
  Report Type: 
  Country: None (occurrence: None)
  Receive Date: 20090519
  Receipt Date: 20090410
  Transmission Date: 20091009
  Serious: Yes (Hospitalization, Other)
  Sender: FDA-Public Use
  Company Number: TN-AVENTIS-200913843GDDC

PATIENT
  Age: 56 Year
  Sex: Male

DRUGS (2)
  1. METRONIDAZOLE W/SPIRAMYCIN [Suspect]
     Dosage: DOSE: 1.5MU/250 MG
     Route: 048
     Dates: start: 20070507, end: 20070508
  2. ANTINEOPLASTIC AGENTS [Suspect]
     Dates: start: 20070427

REACTIONS (6)
  - ANOREXIA [None]
  - ASTHENIA [None]
  - DRUG INTERACTION [None]
  - DYSPNOEA [None]
  - FATIGUE [None]
  - SPEECH DISORDER [None]
